FAERS Safety Report 13569009 (Version 2)
Quarter: 2018Q2

REPORT INFORMATION
  Report Type: Spontaneous
  Country: US (occurrence: US)
  Receive Date: 20170522
  Receipt Date: 20180517
  Transmission Date: 20180711
  Serious: No
  Sender: FDA-Public Use
  Company Number: US-VANDA PHARMACEUTICALS, INC-2017ILOUS001587

PATIENT
  Age: 41 Year
  Sex: Male
  Weight: 99.77 kg

DRUGS (5)
  1. FANAPT [Suspect]
     Active Substance: ILOPERIDONE
     Indication: SCHIZOPHRENIA
     Dosage: 3 MG, QAM
     Route: 048
     Dates: start: 20140812
  2. FANAPT [Suspect]
     Active Substance: ILOPERIDONE
     Dosage: 4 MG, QD
     Dates: start: 20140207
  3. FANAPT [Suspect]
     Active Substance: ILOPERIDONE
     Dosage: 6 MG, BID
     Route: 048
  4. VRAYLAR [Concomitant]
     Active Substance: CARIPRAZINE
     Indication: PRODUCT USED FOR UNKNOWN INDICATION
     Dosage: 3 MG, QD
     Route: 048
     Dates: start: 20170403
  5. FANAPT [Suspect]
     Active Substance: ILOPERIDONE
     Dosage: 6 MG, QD
     Route: 048

REACTIONS (6)
  - Dizziness [Not Recovered/Not Resolved]
  - Sedation complication [Not Recovered/Not Resolved]
  - Heart rate increased [Not Recovered/Not Resolved]
  - Weight increased [Not Recovered/Not Resolved]
  - Headache [Unknown]
  - Drug effect variable [Unknown]

NARRATIVE: CASE EVENT DATE: 201702
